APPROVED DRUG PRODUCT: EXBLIFEP
Active Ingredient: CEFEPIME HYDROCHLORIDE; ENMETAZOBACTAM
Strength: EQ 2GM BASE/VIAL;0.5GM/VIAL
Dosage Form/Route: POWDER;INTRAVENOUS
Application: N216165 | Product #001
Applicant: ORCHID PHARMA LTD
Approved: Feb 22, 2024 | RLD: Yes | RS: No | Type: DISCN

PATENTS:
Patent 7687488 | Expires: Dec 3, 2027
Patent 11124526 | Expires: Nov 7, 2034

EXCLUSIVITY:
Code: NCE | Date: Feb 22, 2029
Code: GAIN | Date: Feb 22, 2034